FAERS Safety Report 4387779-2 (Version None)
Quarter: 2004Q2

REPORT INFORMATION
  Report Type: 
  Country: None (occurrence: None)
  Receive Date: 20040630
  Receipt Date: 19940506
  Transmission Date: 20050107
  Serious: Yes (Hospitalization, Disabling)
  Sender: FDA-Public Use
  Company Number: US-GLAXOSMITHKLINE-A0004471A

PATIENT
  Age: 77 Year
  Sex: Male
  Weight: 93 kg

DRUGS (4)
  1. FORTAZ [Suspect]
     Indication: MENINGITIS
     Dosage: 2G THREE TIMES PER DAY
     Route: 042
     Dates: start: 19920917, end: 19920929
  2. GENTAMICIN [Concomitant]
     Indication: MENINGITIS
     Dosage: 160MG PER DAY
     Route: 042
     Dates: start: 19920920, end: 19920923
  3. VANCOMYCIN [Concomitant]
     Indication: MENINGITIS
     Dosage: 1G TWICE PER DAY
     Route: 042
     Dates: start: 19920917, end: 19920920
  4. AMPICILLIN [Concomitant]
     Indication: MENINGITIS
     Dosage: 2G THREE TIMES PER DAY
     Route: 042
     Dates: start: 19920914, end: 19920917

REACTIONS (8)
  - BLOOD CREATININE INCREASED [None]
  - BLOOD UREA INCREASED [None]
  - COMA [None]
  - DISORIENTATION [None]
  - LETHARGY [None]
  - PYREXIA [None]
  - RASH MACULO-PAPULAR [None]
  - STATUS EPILEPTICUS [None]
